FAERS Safety Report 6614623-2 (Version None)
Quarter: 2010Q1

REPORT INFORMATION
  Report Type: 
  Country: None (occurrence: None)
  Receive Date: 20100226
  Receipt Date: 20100222
  Transmission Date: 20100710
  Serious: Yes (Hospitalization)
  Sender: FDA-Public Use
  Company Number: 1000011651

PATIENT
  Age: 86 Year
  Sex: Female

DRUGS (6)
  1. NAMENDA [Suspect]
     Indication: DEMENTIA ALZHEIMER'S TYPE
     Dosage: 5 MG (5 MG, 1 IN 1 D),ORAL; 10 MG (5 MG, 2 IN 1 D),ORAL; 15 MG (15 MG, 1 IN 1 D),ORAL
     Route: 048
     Dates: start: 20091229, end: 20100104
  2. NAMENDA [Suspect]
     Indication: DEMENTIA ALZHEIMER'S TYPE
     Dosage: 5 MG (5 MG, 1 IN 1 D),ORAL; 10 MG (5 MG, 2 IN 1 D),ORAL; 15 MG (15 MG, 1 IN 1 D),ORAL
     Route: 048
     Dates: start: 20100105, end: 20100111
  3. NAMENDA [Suspect]
     Indication: DEMENTIA ALZHEIMER'S TYPE
     Dosage: 5 MG (5 MG, 1 IN 1 D),ORAL; 10 MG (5 MG, 2 IN 1 D),ORAL; 15 MG (15 MG, 1 IN 1 D),ORAL
     Route: 048
     Dates: start: 20100112, end: 20100118
  4. NAMENDA [Suspect]
     Indication: DEMENTIA ALZHEIMER'S TYPE
     Dosage: 20 MG (10 MG, 2 IN 1 D),0RAL
     Route: 048
     Dates: start: 20100119, end: 20100123
  5. VIAGRA [Concomitant]
  6. TYLENOL-500 [Concomitant]

REACTIONS (1)
  - ANGIOEDEMA [None]
